FAERS Safety Report 12663324 (Version 1)
Quarter: 2016Q3

REPORT INFORMATION
  Report Type: Spontaneous
  Country: US (occurrence: None)
  Receive Date: 20160817
  Receipt Date: 20160817
  Transmission Date: 20161109
  Serious: Yes (Death)
  Sender: FDA-Public Use
  Company Number: None

PATIENT
  Age: 16 Year
  Sex: Female
  Weight: 76.66 kg

DRUGS (2)
  1. VESTURA [Suspect]
     Active Substance: DROSPIRENONE\ETHINYL ESTRADIOL
     Indication: DYSMENORRHOEA
     Dates: start: 201604
  2. VESTURA [Suspect]
     Active Substance: DROSPIRENONE\ETHINYL ESTRADIOL
     Indication: ACNE
     Dates: start: 201604

REACTIONS (7)
  - Fall [None]
  - Tachycardia [None]
  - Cardiac ventricular thrombosis [None]
  - Pulmonary embolism [None]
  - Vomiting [None]
  - Dyspnoea [None]
  - Sudden death [None]

NARRATIVE: CASE EVENT DATE: 20160710
